FAERS Safety Report 9095794 (Version 5)
Quarter: 2014Q1

REPORT INFORMATION
  Report Type: Spontaneous
  Country: US (occurrence: US)
  Receive Date: 20130219
  Receipt Date: 20140203
  Transmission Date: 20141002
  Serious: Yes (Hospitalization, Disabling, Other)
  Sender: FDA-Public Use
  Company Number: US-009507513-1302USA006696

PATIENT
  Sex: Female
  Weight: 93.42 kg

DRUGS (3)
  1. NUVARING [Suspect]
     Indication: CONTRACEPTION
     Dosage: UNK
     Route: 067
     Dates: start: 200912, end: 20120731
  2. HYDROCHLOROTHIAZIDE [Concomitant]
     Indication: HYPERTENSION
     Dosage: UNK
     Dates: start: 2011, end: 2013
  3. ESTRADERM [Suspect]
     Indication: CONTRACEPTION

REACTIONS (29)
  - Thrombocytopenia [Unknown]
  - Vitiligo [Unknown]
  - Weight increased [Recovered/Resolved]
  - Asthenia [Unknown]
  - Asthenia [Unknown]
  - Keratomileusis [Unknown]
  - Hyperlipidaemia [Unknown]
  - Constipation [Unknown]
  - Fatigue [Unknown]
  - Pulmonary hypertension [Not Recovered/Not Resolved]
  - Pulmonary embolism [Not Recovered/Not Resolved]
  - Deep vein thrombosis [Not Recovered/Not Resolved]
  - Coagulopathy [Unknown]
  - Emotional disorder [Unknown]
  - Hypertension [Not Recovered/Not Resolved]
  - Cardiac disorder [Unknown]
  - Pulmonary oedema [Unknown]
  - Umbilical hernia repair [Unknown]
  - Lymphadenopathy [Not Recovered/Not Resolved]
  - Lupus pneumonitis [Unknown]
  - Papilloma viral infection [Unknown]
  - Nausea [Unknown]
  - Treatment noncompliance [Unknown]
  - Dyspnoea [Unknown]
  - Bacterial vaginosis [Unknown]
  - Arthritis [Unknown]
  - Hypocomplementaemia [Unknown]
  - Proteinuria [Unknown]
  - Leukopenia [Unknown]
